FAERS Safety Report 4404177-3 (Version None)
Quarter: 2004Q3

REPORT INFORMATION
  Report Type: 
  Country: None (occurrence: None)
  Receive Date: 20040719
  Receipt Date: 20040709
  Transmission Date: 20050211
  Serious: Yes (Hospitalization)
  Sender: FDA-Public Use
  Company Number: 200412180GDS

PATIENT
  Age: 69 Year
  Sex: Male

DRUGS (7)
  1. ASPIRIN [Suspect]
     Indication: PROPHYLAXIS
     Dosage: 100 MG, QD, ORAL
     Route: 048
     Dates: start: 20030929, end: 20040623
  2. VOLTAREN [Suspect]
     Indication: RENAL COLIC
     Dosage: 100 MG, QD, RECTAL
     Route: 054
     Dates: start: 20040621, end: 20040623
  3. CASODEX [Concomitant]
  4. ADALAT [Concomitant]
  5. NEBILOX [Concomitant]
  6. FOSIPRES [Concomitant]
  7. CARDURA [Concomitant]

REACTIONS (2)
  - HAEMATEMESIS [None]
  - OESOPHAGEAL ULCER [None]
